FAERS Safety Report 8009502-2 (Version None)
Quarter: 2011Q4

REPORT INFORMATION
  Report Type: 
  Country: None (occurrence: None)
  Receive Date: 20111227
  Receipt Date: 20111216
  Transmission Date: 20120403
  Serious: Yes (Life-Threatening)
  Sender: FDA-Public Use
  Company Number: JP-ROCHE-1001515

PATIENT
  Sex: Female
  Weight: 49 kg

DRUGS (11)
  1. NIFEDIPINE [Concomitant]
     Indication: HYPERTENSION
     Route: 048
  2. SODIUM BICARBONATE [Concomitant]
     Route: 048
  3. AMLODIPINE [Concomitant]
     Indication: HYPERTENSION
     Route: 048
  4. ATELEC [Concomitant]
     Indication: HYPERTENSION
     Route: 048
  5. MIRCERA [Suspect]
     Indication: NEPHROGENIC ANAEMIA
     Route: 042
     Dates: start: 20110801, end: 20110901
  6. LOSARTAN POTASSIUM [Concomitant]
     Route: 048
  7. TICLOPIDINE HYDROCHLORIDE [Concomitant]
     Route: 048
  8. FUROSEMIDE [Concomitant]
     Indication: HYPERTENSION
     Route: 048
  9. LOSARTAN POTASSIUM [Concomitant]
     Indication: HYPERTENSION
     Route: 048
  10. CALCITRIOL [Concomitant]
     Route: 048
  11. LYRICA [Concomitant]
     Route: 048

REACTIONS (1)
  - ANAEMIA [None]
